FAERS Safety Report 5107766-6 (Version None)
Quarter: 2006Q3

REPORT INFORMATION
  Report Type: 
  Country: None (occurrence: None)
  Receive Date: 20060914
  Receipt Date: 20060829
  Transmission Date: 20061208
  Serious: Yes (Hospitalization)
  Sender: FDA-Public Use
  Company Number: S06-GER-03133-01

PATIENT
  Age: 70 Year
  Sex: Female
  Weight: 75 kg

DRUGS (4)
  1. MEMANTINE HCL [Suspect]
     Indication: INTENTIONAL OVERDOSE
     Dosage: 1000 MG ONCE PO
     Route: 048
  2. MELPERON (MELPERONE HYDROCHLORIDE) [Suspect]
     Indication: INTENTIONAL OVERDOSE
     Dosage: 2500 MG ONCE PO
     Route: 048
  3. REMERON [Suspect]
     Indication: INTENTIONAL OVERDOSE
     Dosage: 3000 MG ONCE PO
     Route: 048
  4. VENLAFAXINE HCL [Suspect]
     Indication: INTENTIONAL OVERDOSE
     Dosage: 7500 MG ONCE PO
     Route: 048

REACTIONS (8)
  - ASPIRATION [None]
  - ATRIOVENTRICULAR BLOCK FIRST DEGREE [None]
  - BLOOD CREATINE PHOSPHOKINASE INCREASED [None]
  - BRADYCARDIA [None]
  - C-REACTIVE PROTEIN INCREASED [None]
  - COMA [None]
  - INTENTIONAL OVERDOSE [None]
  - VOMITING [None]
